FAERS Safety Report 21214721 (Version 2)
Quarter: 2025Q2

REPORT INFORMATION
  Report Type: Spontaneous
  Country: SE (occurrence: SE)
  Receive Date: 20220816
  Receipt Date: 20250528
  Transmission Date: 20250716
  Serious: Yes (Death, Life-Threatening, Hospitalization, Other)
  Sender: AUROBINDO
  Company Number: SE-MLMSERVICE-20220729-3641626-2

PATIENT
  Age: 174 Month
  Sex: Female

DRUGS (7)
  1. OLANZAPINE [Suspect]
     Active Substance: OLANZAPINE
     Indication: Acute psychosis
     Dosage: 5 MILLIGRAM, ONCE A DAY (ON DAY 2 OF HER ADMISSION )
     Route: 065
  2. OLANZAPINE [Suspect]
     Active Substance: OLANZAPINE
     Dosage: 2.5 MILLIGRAM, ONCE A DAY
     Route: 065
  3. SERTRALINE [Suspect]
     Active Substance: SERTRALINE HYDROCHLORIDE
     Indication: Acute psychosis
     Dosage: 50 MILLIGRAM, ONCE A DAY
     Route: 065
  4. SERTRALINE [Suspect]
     Active Substance: SERTRALINE HYDROCHLORIDE
     Indication: Neuronal ceroid lipofuscinosis
  5. LEVETIRACETAM [Concomitant]
     Active Substance: LEVETIRACETAM
     Indication: Product used for unknown indication
     Route: 065
  6. MELATONIN [Concomitant]
     Active Substance: MELATONIN
     Indication: Product used for unknown indication
     Route: 065
  7. CLOZAPINE [Concomitant]
     Active Substance: CLOZAPINE
     Indication: Product used for unknown indication
     Route: 065

REACTIONS (7)
  - Rhabdomyolysis [Fatal]
  - Renal failure [Fatal]
  - Hepatic failure [Fatal]
  - Hyperthermia [Fatal]
  - Brain oedema [Fatal]
  - Unresponsive to stimuli [Fatal]
  - Neuroleptic malignant syndrome [Fatal]
